FAERS Safety Report 10210808 (Version 1)
Quarter: 2014Q2

REPORT INFORMATION
  Report Type: Spontaneous
  Country: FR (occurrence: FR)
  Receive Date: 20140602
  Receipt Date: 20140602
  Transmission Date: 20141212
  Serious: Yes (Other)
  Sender: FDA-Public Use
  Company Number: FR-MYLANLABS-2014S1012050

PATIENT
  Age: 60 Year
  Sex: Female

DRUGS (3)
  1. SULPIRIDE [Suspect]
     Route: 065
     Dates: start: 200909
  2. FLUOXETINE [Suspect]
     Route: 065
     Dates: start: 200909, end: 201201
  3. AGOMELATINE [Suspect]
     Dosage: 25 MG/DAY
     Route: 065
     Dates: start: 201201

REACTIONS (2)
  - Tachycardia [Recovered/Resolved]
  - Chest pain [Recovered/Resolved]
